FAERS Safety Report 18050135 (Version 4)
Quarter: 2021Q1

REPORT INFORMATION
  Report Type: Report from Study
  Country: NZ (occurrence: NZ)
  Receive Date: 20200721
  Receipt Date: 20210205
  Transmission Date: 20210419
  Serious: Yes (Disabling)
  Sender: FDA-Public Use
  Company Number: NZ-ROCHE-2642132

PATIENT
  Age: 65 Year
  Sex: Male
  Weight: 84.8 kg

DRUGS (22)
  1. COLOXYL WITH SENNA [Concomitant]
     Active Substance: DOCUSATE SODIUM\SENNOSIDES A AND B
     Indication: CONSTIPATION
     Route: 048
     Dates: start: 20190706, end: 20190710
  2. ROXITHROMYCIN [Concomitant]
     Active Substance: ROXITHROMYCIN
     Indication: PNEUMONIA
     Route: 048
     Dates: start: 20190716, end: 20190723
  3. BREO ELLIPTA [Concomitant]
     Active Substance: FLUTICASONE FUROATE\VILANTEROL TRIFENATATE
     Indication: CHRONIC OBSTRUCTIVE PULMONARY DISEASE
     Dates: start: 20180606
  4. RESPIGEN [Concomitant]
     Indication: CHRONIC OBSTRUCTIVE PULMONARY DISEASE
     Dates: start: 1999
  5. AUGMENTIN [Concomitant]
     Active Substance: AMOXICILLIN\CLAVULANATE POTASSIUM
     Route: 048
     Dates: start: 20191011, end: 20191014
  6. DABIGATRAN [Concomitant]
     Active Substance: DABIGATRAN
     Indication: ATRIAL FLUTTER
     Dates: start: 20180724
  7. CARTIA (NEW ZEALAND) [Concomitant]
     Dates: start: 1999
  8. ZOPICLONE [Concomitant]
     Active Substance: ZOPICLONE
     Dates: start: 20140526
  9. PARACETAMOL+CODEIN [Concomitant]
     Active Substance: ACETAMINOPHEN\CODEINE PHOSPHATE
     Indication: PAIN
     Dates: start: 201307
  10. FLIXONASE [Concomitant]
     Active Substance: FLUTICASONE PROPIONATE
     Indication: EAR CONGESTION
     Dates: start: 201501
  11. OTRIVIN [Concomitant]
     Active Substance: XYLOMETAZOLINE
     Indication: SINUSITIS
     Route: 045
     Dates: start: 20190308
  12. MICONAZOLE. [Concomitant]
     Active Substance: MICONAZOLE
     Route: 048
     Dates: start: 20190821, end: 20190831
  13. FLIXONASE [Concomitant]
     Active Substance: FLUTICASONE PROPIONATE
     Indication: SINUSITIS
     Route: 045
     Dates: start: 20190308
  14. AUGMENTIN [Concomitant]
     Active Substance: AMOXICILLIN\CLAVULANATE POTASSIUM
     Indication: PNEUMONIA
     Route: 048
     Dates: start: 20190924, end: 20190928
  15. LIPITOR [Concomitant]
     Active Substance: ATORVASTATIN CALCIUM
     Indication: HYPERCHOLESTEROLAEMIA
     Dates: start: 2000
  16. AMOXIL [Concomitant]
     Active Substance: AMOXICILLIN
     Indication: GROIN INFECTION
     Route: 048
     Dates: start: 20190107, end: 20190112
  17. AMOXICILLIN. [Concomitant]
     Active Substance: AMOXICILLIN
     Indication: PNEUMONIA
     Route: 048
     Dates: start: 20190716, end: 20190723
  18. MICONAZOLE. [Concomitant]
     Active Substance: MICONAZOLE
     Route: 061
     Dates: start: 20200302, end: 20200401
  19. NILSTAT [Concomitant]
     Active Substance: NYSTATIN
     Indication: ORAL CANDIDIASIS
     Dates: start: 20160415
  20. ATEZOLIZUMAB. [Suspect]
     Active Substance: ATEZOLIZUMAB
     Indication: NON-SMALL CELL LUNG CANCER
     Dosage: DATE OF MOST RECENT DOSE(1200 MG) OF ATEZOLIZUMAB PRIOR TO ADVERSE EVENT ONSET: 09/MAR/2020
     Route: 042
     Dates: start: 20181015
  21. SPIRIVA [Concomitant]
     Active Substance: TIOTROPIUM BROMIDE MONOHYDRATE
     Indication: CHRONIC OBSTRUCTIVE PULMONARY DISEASE
     Dates: start: 20140603
  22. AMOXICILLIN. [Concomitant]
     Active Substance: AMOXICILLIN
     Route: 048
     Dates: start: 20190821, end: 20190831

REACTIONS (1)
  - Psoriasis [Not Recovered/Not Resolved]

NARRATIVE: CASE EVENT DATE: 20200603
